FAERS Safety Report 6829644-4 (Version None)
Quarter: 2010Q3

REPORT INFORMATION
  Report Type: 
  Country: None (occurrence: None)
  Receive Date: 20100709
  Receipt Date: 20070425
  Transmission Date: 20110219
  Serious: No
  Sender: FDA-Public Use
  Company Number: US-PFIZER INC-2007011528

PATIENT
  Sex: Female
  Weight: 54.43 kg

DRUGS (13)
  1. VARENICLINE [Suspect]
     Indication: EX-TOBACCO USER
     Dates: start: 20060101
  2. LEVOTHYROXINE SODIUM [Concomitant]
  3. PRILOSEC [Concomitant]
  4. HYDROMORPHONE [Concomitant]
  5. HYDROCODONE BITARTRATE [Concomitant]
  6. PROMETHAZINE [Concomitant]
  7. LYRICA [Concomitant]
  8. ATENOLOL [Concomitant]
  9. ZONEGRAN [Concomitant]
  10. LAMICTAL [Concomitant]
  11. SINEMET [Concomitant]
  12. GLYCEROL [Concomitant]
  13. ALPRAZOLAM [Concomitant]

REACTIONS (3)
  - GLOSSODYNIA [None]
  - NAUSEA [None]
  - TOBACCO USER [None]
